FAERS Safety Report 4414704-8 (Version None)
Quarter: 2004Q3

REPORT INFORMATION
  Report Type: 
  Country: None (occurrence: None)
  Receive Date: 20040804
  Receipt Date: 20030612
  Transmission Date: 20050211
  Serious: No
  Sender: FDA-Public Use
  Company Number: US-BRISTOL-MYERS SQUIBB COMPANY-12300190

PATIENT
  Age: 52 Year
  Sex: Male
  Weight: 141 kg

DRUGS (3)
  1. GLUCOVANCE [Suspect]
     Indication: DIABETES MELLITUS
     Route: 048
     Dates: start: 20020301
  2. LEXAPRO [Concomitant]
  3. CELEBREX [Concomitant]

REACTIONS (3)
  - CHEST DISCOMFORT [None]
  - DIABETES MELLITUS INADEQUATE CONTROL [None]
  - FEELING ABNORMAL [None]
